FAERS Safety Report 26037690 (Version 1)
Quarter: 2025Q4

REPORT INFORMATION
  Report Type: Spontaneous
  Country: US (occurrence: US)
  Receive Date: 20251112
  Receipt Date: 20251112
  Transmission Date: 20260117
  Serious: Yes (Other)
  Sender: Kenvue
  Company Number: US-KENVUE-20251103643

PATIENT
  Sex: Female
  Weight: 5.125 kg

DRUGS (5)
  1. CETIRIZINE HYDROCHLORIDE [Suspect]
     Active Substance: CETIRIZINE HYDROCHLORIDE
     Indication: Migraine
     Dosage: 10 MILLIGRAM, AS NEEDED
     Route: 064
     Dates: start: 202404
  2. TYLENOL [Suspect]
     Active Substance: ACETAMINOPHEN
     Indication: Migraine
     Dosage: 500 MILLIGRAM, AS NEEDED
     Route: 064
     Dates: start: 2024
  3. TYLENOL SINUS PLUS HEADACHE DAY [Suspect]
     Active Substance: ACETAMINOPHEN\PHENYLEPHRINE HYDROCHLORIDE
     Indication: Migraine
     Dosage: 350 MILLIGRAM, AS NEEDED
     Route: 064
  4. BENADRYL [Suspect]
     Active Substance: DIPHENHYDRAMINE HYDROCHLORIDE
     Indication: Migraine
     Dosage: UNK, AS NEEDED
     Route: 064
     Dates: start: 202404
  5. DERMA-SMOOTHE/FS [Concomitant]
     Active Substance: FLUOCINOLONE ACETONIDE
     Indication: Eczema
     Dosage: UNK
     Route: 064
     Dates: start: 20250113, end: 2025

REACTIONS (2)
  - Postnatal growth restriction [Not Recovered/Not Resolved]
  - Foetal exposure during pregnancy [Unknown]

NARRATIVE: CASE EVENT DATE: 20250113
